FAERS Safety Report 23284586 (Version 3)
Quarter: 2023Q4

REPORT INFORMATION
  Report Type: Spontaneous
  Country: CA (occurrence: CA)
  Receive Date: 20231211
  Receipt Date: 20231219
  Transmission Date: 20240109
  Serious: Yes (Hospitalization, Other)
  Sender: FDA-Public Use
  Company Number: CA-PFIZER INC-202300347970

PATIENT
  Age: 43 Year
  Sex: Female
  Weight: 145 kg

DRUGS (15)
  1. RUXIENCE [Suspect]
     Active Substance: RITUXIMAB-PVVR
     Indication: Granulomatosis with polyangiitis
     Dosage: 2 DOSES (1000MG DAY 1)
     Route: 042
     Dates: start: 20231127
  2. RUXIENCE [Suspect]
     Active Substance: RITUXIMAB-PVVR
     Dosage: 2 DOSES (1000MG DAY 1)
     Route: 042
     Dates: start: 20231211
  3. ACETAMINOPHEN [Concomitant]
     Active Substance: ACETAMINOPHEN
     Indication: Premedication
     Dosage: 650 MG
     Dates: start: 20231127, end: 20231127
  4. ACETAMINOPHEN [Concomitant]
     Active Substance: ACETAMINOPHEN
     Dosage: UNK
     Dates: start: 20231211, end: 20231211
  5. CLOTRIMAZOLE [Concomitant]
     Active Substance: CLOTRIMAZOLE
     Dosage: UNK, AS NEEDED
  6. DIPHENHYDRAMINE [Concomitant]
     Active Substance: DIPHENHYDRAMINE
     Indication: Premedication
     Dosage: 50 MG
     Dates: start: 20231127, end: 20231127
  7. DIPHENHYDRAMINE [Concomitant]
     Active Substance: DIPHENHYDRAMINE
     Dosage: UNK
     Dates: start: 20231211, end: 20231211
  8. LEVOTHYROXINE [Concomitant]
     Active Substance: LEVOTHYROXINE
     Dosage: 50 UG
  9. EPIPEN [Concomitant]
     Active Substance: EPINEPHRINE
     Dosage: UNK, AS NEEDED
  10. FOLIC ACID [Concomitant]
     Active Substance: FOLIC ACID
     Indication: Granulomatosis with polyangiitis
     Dosage: 1 DF
  11. FOLIC ACID [Concomitant]
     Active Substance: FOLIC ACID
     Indication: Microscopic polyangiitis
  12. METHOTREXATE [Concomitant]
     Active Substance: METHOTREXATE
     Indication: Granulomatosis with polyangiitis
     Dosage: 25 MG, WEEKLY
     Route: 058
     Dates: start: 202306
  13. METHOTREXATE [Concomitant]
     Active Substance: METHOTREXATE
     Indication: Microscopic polyangiitis
  14. METHYLPREDNISOLONE [Concomitant]
     Active Substance: METHYLPREDNISOLONE
     Indication: Premedication
     Dosage: 100 MG
     Dates: start: 20231127, end: 20231127
  15. METROGEL [Concomitant]
     Active Substance: METRONIDAZOLE
     Dosage: 1 %, DAILY

REACTIONS (12)
  - Respiratory distress [Recovered/Resolved]
  - Pharyngeal disorder [Unknown]
  - Laryngeal stenosis [Unknown]
  - Abdominal pain [Not Recovered/Not Resolved]
  - Decreased appetite [Not Recovered/Not Resolved]
  - Polyuria [Not Recovered/Not Resolved]
  - Off label use [Unknown]
  - Dyspnoea [Not Recovered/Not Resolved]
  - Pain [Not Recovered/Not Resolved]
  - C-reactive protein increased [Unknown]
  - Headache [Unknown]
  - Oesophageal dilation procedure [Unknown]

NARRATIVE: CASE EVENT DATE: 20230101
